FAERS Safety Report 21553703 (Version 4)
Quarter: 2024Q4

REPORT INFORMATION
  Report Type: Spontaneous
  Country: US (occurrence: US)
  Receive Date: 20221104
  Receipt Date: 20241230
  Transmission Date: 20250114
  Serious: Yes (Other)
  Sender: PFIZER
  Company Number: US-PFIZER INC-PV202200096676

PATIENT
  Age: 76 Year
  Sex: Female

DRUGS (3)
  1. IBRANCE [Suspect]
     Active Substance: PALBOCICLIB
     Indication: Hormone receptor positive breast cancer
     Dosage: TAKE 1 CAPSULE IN THE MORNING, DAILY FOR 21 DAYS THEN 7 DAYS OFF
     Route: 048
     Dates: start: 201603
  2. IBRANCE [Suspect]
     Active Substance: PALBOCICLIB
     Dosage: 1 CAPSULE (75 MG TOTAL) BY MOUTH IN THE MORNING/ONE TABLET DAILY FOR 21 DAYS THEN 7 DAYS OFF
     Route: 048
     Dates: start: 20240125
  3. LETROZOLE [Concomitant]
     Active Substance: LETROZOLE
     Indication: Malignant nipple neoplasm female
     Dosage: UNK
     Dates: start: 201603

REACTIONS (2)
  - Neutropenia [Unknown]
  - Fatigue [Unknown]
